FAERS Safety Report 21186096 (Version 1)
Quarter: 2022Q3

REPORT INFORMATION
  Report Type: Spontaneous
  Country: US (occurrence: US)
  Receive Date: 20220808
  Receipt Date: 20220808
  Transmission Date: 20221026
  Serious: Yes (Other)
  Sender: FDA-Public Use
  Company Number: US-MLMSERVICE-20220714-3677275-1

PATIENT
  Age: 3 Month
  Sex: Male

DRUGS (5)
  1. DORZOLAMIDE [Suspect]
     Active Substance: DORZOLAMIDE
     Indication: Ocular hypertension
     Dosage: RIGHT EYE (OD)
  2. LATANOPROST [Concomitant]
     Active Substance: LATANOPROST
     Dosage: RIGHT EYE (OD)
  3. TIMOLOL [Concomitant]
     Active Substance: TIMOLOL
     Dosage: BOTH EYES (OU)
  4. ACETAZOLAMIDE [Concomitant]
     Active Substance: ACETAZOLAMIDE
  5. NETARSUDIL 0.02% [Concomitant]
     Dosage: ONE DROP DAILY IN EACH EYE

REACTIONS (1)
  - Corneal opacity [Recovering/Resolving]
